FAERS Safety Report 4287836-5 (Version None)
Quarter: 2004Q1

REPORT INFORMATION
  Report Type: 
  Country: None (occurrence: None)
  Receive Date: 20040209
  Receipt Date: 20031006
  Transmission Date: 20041129
  Serious: No
  Sender: FDA-Public Use
  Company Number: US-GLAXOSMITHKLINE-A0428985A

PATIENT
  Age: 55 Year
  Sex: Female

DRUGS (4)
  1. PAXIL [Suspect]
     Dosage: 12.5MG PER DAY
     Route: 048
     Dates: start: 20030701
  2. PAXIL [Suspect]
     Route: 048
     Dates: start: 19990101
  3. PLAQUENIL [Concomitant]
  4. SYNTHROID [Concomitant]
     Dosage: .125MG PER DAY

REACTIONS (1)
  - ALOPECIA [None]
